FAERS Safety Report 20011717 (Version 4)
Quarter: 2021Q4

REPORT INFORMATION
  Report Type: Spontaneous
  Country: US (occurrence: None)
  Receive Date: 20211029
  Receipt Date: 20211207
  Transmission Date: 20220303
  Serious: Yes (Hospitalization)
  Sender: FDA-Public Use
  Company Number: US-ULTRAGENYX PHARMACEUTICAL INC.-US-UGNX-21-00378

PATIENT
  Age: 2 Year
  Sex: Female

DRUGS (8)
  1. DOJOLVI [Suspect]
     Active Substance: TRIHEPTANOIN
     Indication: Long-chain acyl-coenzyme A dehydrogenase deficiency
     Route: 048
     Dates: start: 20210118
  2. TYLENOL [Concomitant]
     Active Substance: ACETAMINOPHEN
     Indication: Pain
     Route: 048
  3. TYLENOL [Concomitant]
     Active Substance: ACETAMINOPHEN
     Indication: Pyrexia
  4. GLUTOSE [Concomitant]
     Active Substance: DEXTROSE
     Indication: Blood glucose decreased
     Route: 048
     Dates: start: 20210623
  5. SODIUM FLUORIDE [Concomitant]
     Active Substance: SODIUM FLUORIDE
     Indication: Product used for unknown indication
     Dosage: 0.5 MG (1.1 MG SODIUM FLUORIDE)/ML
     Route: 048
     Dates: start: 20210115
  6. IBUPROFEN [Concomitant]
     Active Substance: IBUPROFEN
     Indication: Pain
     Dosage: 100 MG/5 ML
     Route: 048
  7. IBUPROFEN [Concomitant]
     Active Substance: IBUPROFEN
     Indication: Pyrexia
  8. CLARITIN [Concomitant]
     Active Substance: LORATADINE
     Dosage: 5 MG/5 ML
     Route: 048

REACTIONS (2)
  - Long-chain acyl-coenzyme A dehydrogenase deficiency [Recovered/Resolved]
  - Upper respiratory tract infection [Recovered/Resolved]

NARRATIVE: CASE EVENT DATE: 20211018
